FAERS Safety Report 13633820 (Version 1)
Quarter: 2017Q2

REPORT INFORMATION
  Report Type: Spontaneous
  Country: US (occurrence: US)
  Receive Date: 20170531
  Receipt Date: 20170531
  Transmission Date: 20170830
  Serious: No
  Sender: FDA-Public Use
  Company Number: US-ASTELLAS-1581048

PATIENT
  Sex: Male

DRUGS (4)
  1. CLOBETASOL [Concomitant]
     Active Substance: CLOBETASOL
  2. DESONIDE. [Concomitant]
     Active Substance: DESONIDE
  3. LOTRIMIN ULTRA [Concomitant]
     Active Substance: BUTENAFINE HYDROCHLORIDE
  4. TARCEVA [Suspect]
     Active Substance: ERLOTINIB HYDROCHLORIDE
     Indication: LUNG NEOPLASM MALIGNANT
     Route: 048
     Dates: start: 20150327

REACTIONS (4)
  - Diarrhoea [Unknown]
  - Tinea pedis [Unknown]
  - Oral discomfort [Unknown]
  - Skin disorder [Unknown]
